FAERS Safety Report 9779448 (Version 2)
Quarter: 2014Q1

REPORT INFORMATION
  Report Type: Report from Study
  Country: US (occurrence: US)
  Receive Date: 20131223
  Receipt Date: 20140211
  Transmission Date: 20141002
  Serious: Yes (Other)
  Sender: FDA-Public Use
  Company Number: US-US-EMD SERONO, INC.-7258566

PATIENT
  Age: 69 Year
  Sex: Female

DRUGS (1)
  1. REBIF [Suspect]
     Indication: MULTIPLE SCLEROSIS
     Route: 058
     Dates: start: 20110706

REACTIONS (5)
  - Eyelid disorder [Recovered/Resolved]
  - Visual impairment [Recovered/Resolved]
  - Eye disorder [Recovered/Resolved]
  - Eye pain [Recovered/Resolved]
  - Headache [Recovered/Resolved]
